FAERS Safety Report 7411143-2 (Version None)
Quarter: 2011Q2

REPORT INFORMATION
  Report Type: 
  Country: None (occurrence: None)
  Receive Date: 20110413
  Receipt Date: 20100306
  Transmission Date: 20111010
  Serious: Yes (Other)
  Sender: FDA-Public Use
  Company Number: US-BRISTOL-MYERS SQUIBB COMPANY-14996797

PATIENT
  Age: 72 Year
  Sex: Male
  Weight: 97 kg

DRUGS (12)
  1. ERBITUX [Suspect]
     Indication: COLORECTAL CANCER
     Dosage: 100MG VIAL 50ML
     Route: 042
     Dates: start: 20100301
  2. VITAMIN B-12 [Concomitant]
     Dosage: INJECTION
  3. IRINOTECAN HCL [Suspect]
     Indication: COLORECTAL CANCER
     Route: 042
     Dates: start: 20100301
  4. DEXAMETHASONE [Concomitant]
     Indication: PREMEDICATION
  5. FLOMAX [Concomitant]
  6. VITAMIN D [Concomitant]
     Dosage: 1 DF = 1000 UNIT NOS
  7. PARAMETHASONE ACETATE [Concomitant]
  8. LISINOPRIL [Concomitant]
  9. BENADRYL [Concomitant]
     Indication: PREMEDICATION
  10. AMBIEN [Concomitant]
  11. COMPAZINE [Concomitant]
  12. ALOXI [Concomitant]
     Indication: PREMEDICATION

REACTIONS (6)
  - SKIN IRRITATION [None]
  - BLOOD PRESSURE DECREASED [None]
  - SYNCOPE [None]
  - ERYTHEMA [None]
  - SWELLING [None]
  - PRURITUS [None]
